FAERS Safety Report 8079048-4 (Version None)
Quarter: 2012Q1

REPORT INFORMATION
  Report Type: 
  Country: None (occurrence: None)
  Receive Date: 20120128
  Receipt Date: 20110815
  Transmission Date: 20120608
  Serious: Yes (Hospitalization)
  Sender: FDA-Public Use
  Company Number: US-ABBOTT-11P-163-0844738-00

PATIENT
  Sex: Female
  Weight: 54.48 kg

DRUGS (2)
  1. PREDNISONE TAB [Concomitant]
     Indication: RHEUMATOID ARTHRITIS
  2. HUMIRA [Suspect]
     Indication: RHEUMATOID ARTHRITIS
     Dates: start: 20030101, end: 20080101

REACTIONS (2)
  - MYOCARDIAL INFARCTION [None]
  - PALPITATIONS [None]
